FAERS Safety Report 18236388 (Version 2)
Quarter: 2020Q3

REPORT INFORMATION
  Report Type: Spontaneous
  Country: US (occurrence: US)
  Receive Date: 20200907
  Receipt Date: 20200911
  Transmission Date: 20201103
  Serious: Yes (Disabling)
  Sender: FDA-Public Use
  Company Number: US-NOVEN PHARMACEUTICALS, INC.-2020US004901

PATIENT
  Age: 58 Year
  Sex: Female
  Weight: 70.3 kg

DRUGS (3)
  1. COMBIPATCH [Suspect]
     Active Substance: ESTRADIOL\NORETHINDRONE ACETATE
     Dosage: 0.05/0.14 MG, 2/WEEK
     Route: 062
     Dates: start: 20200827, end: 20200901
  2. COMBIPATCH [Suspect]
     Active Substance: ESTRADIOL\NORETHINDRONE ACETATE
     Dosage: 0.05/0.14 MG, 2/WEEK
     Route: 062
     Dates: start: 202005, end: 20200826
  3. COMBIPATCH [Suspect]
     Active Substance: ESTRADIOL\NORETHINDRONE ACETATE
     Indication: MENOPAUSAL SYMPTOMS
     Dosage: 0.05/0.14 MG, 2/WEEK
     Route: 062
     Dates: start: 20200902

REACTIONS (7)
  - Mood altered [Recovering/Resolving]
  - Wrong technique in product usage process [Recovered/Resolved]
  - Insomnia [Recovering/Resolving]
  - Postmenopausal haemorrhage [Not Recovered/Not Resolved]
  - Menopausal symptoms [Recovering/Resolving]
  - Product adhesion issue [Recovered/Resolved]
  - Memory impairment [Recovered/Resolved]

NARRATIVE: CASE EVENT DATE: 2020
